FAERS Safety Report 22278313 (Version 2)
Quarter: 2023Q2

REPORT INFORMATION
  Report Type: Spontaneous
  Country: US (occurrence: US)
  Receive Date: 20230503
  Receipt Date: 20230616
  Transmission Date: 20230721
  Serious: Yes (Death, Other)
  Sender: FDA-Public Use
  Company Number: US-AMNEAL PHARMACEUTICALS-2023-AMRX-01485

PATIENT
  Age: 76 Year
  Sex: Male
  Weight: 63.039 kg

DRUGS (5)
  1. RYTARY [Suspect]
     Active Substance: CARBIDOPA\LEVODOPA
     Indication: Product used for unknown indication
     Dosage: 2 (36.25/145 MG) CAPSULES AT 8 AM, 1 CAPSULE AT NOON, 2 CAPSULES AT 4PM, AND 2 CAPSULES AT 8 PM
     Route: 048
  2. RYTARY [Suspect]
     Active Substance: CARBIDOPA\LEVODOPA
     Dosage: 48.75-195 MG, TAKE 1 CAPSULE EVERY DAY AT NOON
     Route: 048
  3. RYTARY [Suspect]
     Active Substance: CARBIDOPA\LEVODOPA
     Dosage: 23.75-95 MG, 1 CAPSULE EVERY DAY AT 1 AM
     Route: 048
  4. RYTARY [Suspect]
     Active Substance: CARBIDOPA\LEVODOPA
     Dosage: DOSE CHANGE FOR 36.25-145 MG TO 1 CAPSULE EIGHT TIMES DAILY
     Route: 048
     Dates: start: 20211214
  5. RYTARY [Suspect]
     Active Substance: CARBIDOPA\LEVODOPA
     Dosage: 32.25 -145 MG, 2 CAPSULES FOUR TIMES A DAY (8AM, NOON, 4 PM AND 8 PM)
     Route: 048
     Dates: start: 20220615

REACTIONS (2)
  - Parkinson^s disease [Fatal]
  - Spinal fracture [Not Recovered/Not Resolved]

NARRATIVE: CASE EVENT DATE: 20230407
